FAERS Safety Report 7486131-0 (Version None)
Quarter: 2011Q2

REPORT INFORMATION
  Report Type: 
  Country: None (occurrence: None)
  Receive Date: 20110517
  Receipt Date: 20110511
  Transmission Date: 20111010
  Serious: Yes (Life-Threatening)
  Sender: FDA-Public Use
  Company Number: FR-PFIZER INC-HQWYE072316DEC05

PATIENT
  Age: 83 Year
  Sex: Female

DRUGS (3)
  1. PANTOPRAZOLE [Suspect]
     Indication: PROPHYLAXIS
     Dosage: 20 MG, 1X/DAY
     Route: 048
     Dates: start: 20051025, end: 20051027
  2. PIROXICAM [Suspect]
     Indication: OSTEOARTHRITIS
     Dosage: 20 MG, 1X/DAY
     Route: 048
     Dates: start: 20051025, end: 20051029
  3. PANTOPRAZOLE [Suspect]
     Dosage: SOME/DAY 20 MG
     Route: 048
     Dates: start: 20051029

REACTIONS (3)
  - GASTROINTESTINAL ULCER [None]
  - DRUG INEFFECTIVE [None]
  - MELAENA [None]
